FAERS Safety Report 6861296-X (Version None)
Quarter: 2010Q3

REPORT INFORMATION
  Report Type: 
  Country: None (occurrence: None)
  Receive Date: 20100720
  Receipt Date: 20100708
  Transmission Date: 20110219
  Serious: Yes (Other)
  Sender: FDA-Public Use
  Company Number: BR-PFIZER INC-2010085737

PATIENT
  Age: 35 Year
  Sex: Female

DRUGS (3)
  1. CHAMPIX [Suspect]
     Indication: SMOKING CESSATION THERAPY
     Dosage: UNK
     Route: 048
     Dates: start: 20100505, end: 20100601
  2. CHAMPIX [Suspect]
     Dosage: UNK
     Route: 048
     Dates: start: 20100705
  3. LEVOTHYROXINE SODIUM [Concomitant]
     Indication: HYPOTHYROIDISM
     Dosage: 50 MG, 1X/DAY
     Dates: start: 20060101

REACTIONS (3)
  - BIPOLAR DISORDER [None]
  - DEPRESSION [None]
  - EUPHORIC MOOD [None]
